FAERS Safety Report 8974769 (Version 1)
Quarter: 2012Q4

REPORT INFORMATION
  Report Type: 
  Country: JP (occurrence: JP)
  Receive Date: 20121219
  Receipt Date: 20121219
  Transmission Date: 20130627
  Serious: Yes (Other)
  Sender: FDA-Public Use
  Company Number: JP-PFIZER INC-2012320772

PATIENT

DRUGS (2)
  1. LYRICA [Suspect]
     Dosage: 25 mg, 1x/day
     Route: 048
     Dates: start: 20121217
  2. DEPAS [Concomitant]
     Dosage: UNK
     Route: 048

REACTIONS (1)
  - Loss of control of legs [Unknown]
